FAERS Safety Report 16192002 (Version 2)
Quarter: 2019Q2

REPORT INFORMATION
  Report Type: Report from Study
  Country: US (occurrence: US)
  Receive Date: 20190412
  Receipt Date: 20190423
  Transmission Date: 20190711
  Serious: No
  Sender: FDA-Public Use
  Company Number: PHEH2019US015631

PATIENT
  Sex: Male

DRUGS (1)
  1. COSENTYX [Suspect]
     Active Substance: SECUKINUMAB
     Indication: PSORIASIS
     Dosage: 2 DF, 300MG, EVERY 5 DAYS
     Route: 058

REACTIONS (13)
  - Bone pain [Unknown]
  - Pain in extremity [Unknown]
  - Pain [Unknown]
  - Bone disorder [Unknown]
  - Weight decreased [Unknown]
  - Inappropriate schedule of product administration [Unknown]
  - Rash [Not Recovered/Not Resolved]
  - Arthralgia [Unknown]
  - Diarrhoea [Unknown]
  - Malaise [Unknown]
  - Sneezing [Unknown]
  - Cough [Unknown]
  - Asthenia [Unknown]
